FAERS Safety Report 10290424 (Version 1)
Quarter: 2014Q3

REPORT INFORMATION
  Report Type: Spontaneous
  Country: DE (occurrence: DE)
  Receive Date: 20140710
  Receipt Date: 20140710
  Transmission Date: 20150326
  Serious: Yes (Congenital Anomaly, Other)
  Sender: FDA-Public Use
  Company Number: DE-WATSON-2014-14579

PATIENT
  Age: 1 Day
  Sex: Male
  Weight: 2.2 kg

DRUGS (6)
  1. L-THYROXIN [Concomitant]
     Active Substance: LEVOTHYROXINE SODIUM
     Indication: HYPOTHYROIDISM
     Dosage: 100MCG DAILY
     Route: 064
     Dates: start: 20130502, end: 20140127
  2. RENNIE                             /01739201/ [Concomitant]
     Indication: DYSPEPSIA
     Dosage: UNK
     Route: 064
     Dates: start: 20130502, end: 20140127
  3. IBUPROFEN LYSINATE [Concomitant]
     Active Substance: IBUPROFEN
     Indication: HEADACHE
     Dosage: 500 MG, PRN
     Route: 064
  4. OMEPRAZOL                          /00661201/ [Concomitant]
     Active Substance: OMEPRAZOLE
     Indication: GASTRITIS PROPHYLAXIS
     Dosage: UNK
     Route: 064
  5. CITALOPRAM [Suspect]
     Active Substance: CITALOPRAM HYDROBROMIDE
     Indication: DEPRESSION
     Dosage: 20 MG, DAILY
     Route: 064
     Dates: start: 20130502, end: 20140127
  6. FOLIO FORTE [Concomitant]
     Active Substance: FOLIC ACID\VITAMINS
     Indication: PROPHYLAXIS OF NEURAL TUBE DEFECT
     Dosage: 0.8 MG, DAILY
     Route: 064
     Dates: start: 20130502, end: 20140127

REACTIONS (3)
  - Hypospadias [Not Recovered/Not Resolved]
  - Small for dates baby [Recovering/Resolving]
  - Foetal exposure during pregnancy [Recovered/Resolved]

NARRATIVE: CASE EVENT DATE: 20140127
